FAERS Safety Report 19403497 (Version 6)
Quarter: 2022Q4

REPORT INFORMATION
  Report Type: Report from Study
  Country: CN (occurrence: CN)
  Receive Date: 20210610
  Receipt Date: 20221012
  Transmission Date: 20230113
  Serious: Yes (Hospitalization, Other)
  Sender: FDA-Public Use
  Company Number: CN-IMMUNOMEDICS, INC.-2021IMMU000171

PATIENT
  Age: 44 Year
  Sex: Female
  Weight: 60 kg

DRUGS (13)
  1. SACITUZUMAB GOVITECAN [Suspect]
     Active Substance: SACITUZUMAB GOVITECAN
     Indication: Triple negative breast cancer
     Dosage: 10 MG/KG, DAYS 1 AND 8 OF A 21 DAY CYCLE
     Route: 042
     Dates: start: 20210108, end: 20210401
  2. PROMETHAZINE HYDROCHLORIDE [Concomitant]
     Active Substance: PROMETHAZINE HYDROCHLORIDE
     Indication: Infusion related reaction
     Dosage: 25 MG, QD
     Route: 041
     Dates: start: 20210318, end: 20210318
  3. PROMETHAZINE HYDROCHLORIDE [Concomitant]
     Active Substance: PROMETHAZINE HYDROCHLORIDE
     Dosage: 25 MG, QD
     Route: 041
     Dates: start: 20210401, end: 20210401
  4. DEXAMETHASONE SODIUM PHOSPHATE [Concomitant]
     Active Substance: DEXAMETHASONE SODIUM PHOSPHATE
     Indication: Prophylaxis of nausea and vomiting
     Dosage: 5 MG, QD
     Route: 041
     Dates: start: 20210318, end: 20210318
  5. DEXAMETHASONE SODIUM PHOSPHATE [Concomitant]
     Active Substance: DEXAMETHASONE SODIUM PHOSPHATE
     Dosage: 5 MG, QD
     Route: 041
     Dates: start: 20210401, end: 20210401
  6. ACETAMINOPHEN [Concomitant]
     Active Substance: ACETAMINOPHEN
     Indication: Infusion related reaction
     Dosage: 0.65 MG, QD
     Route: 048
     Dates: start: 20210318, end: 20210318
  7. ACETAMINOPHEN [Concomitant]
     Active Substance: ACETAMINOPHEN
     Dosage: 0.65 MG, QD
     Route: 048
     Dates: start: 20210401, end: 20210401
  8. CIMETIDINE [Concomitant]
     Active Substance: CIMETIDINE
     Indication: Infusion related reaction
     Dosage: 0.2 G, QD
     Route: 041
     Dates: start: 20210318, end: 20210318
  9. CIMETIDINE [Concomitant]
     Active Substance: CIMETIDINE
     Dosage: 0.2 G, QD
     Route: 041
     Dates: start: 20210401, end: 20210401
  10. PALONOSETRON HYDROCHLORIDE [Concomitant]
     Active Substance: PALONOSETRON HYDROCHLORIDE
     Indication: Prophylaxis of nausea and vomiting
     Dosage: 0.25 MG, QD
     Route: 041
     Dates: start: 20210318, end: 20210318
  11. PALONOSETRON HYDROCHLORIDE [Concomitant]
     Active Substance: PALONOSETRON HYDROCHLORIDE
     Dosage: 0.25 MG, QD
     Route: 041
     Dates: start: 20210401, end: 20210401
  12. ESOMEPRAZOLE SODIUM [Concomitant]
     Active Substance: ESOMEPRAZOLE SODIUM
     Dosage: UNK
     Dates: start: 20210411, end: 20210411
  13. ROXATIDINE ACETATE [Concomitant]
     Active Substance: ROXATIDINE ACETATE
     Dosage: UNK
     Dates: start: 20210413, end: 20210415

REACTIONS (4)
  - Aspartate aminotransferase increased [Recovered/Resolved]
  - Alanine aminotransferase increased [Recovered/Resolved]
  - Blood bilirubin increased [Not Recovered/Not Resolved]
  - Jaundice cholestatic [Not Recovered/Not Resolved]

NARRATIVE: CASE EVENT DATE: 20210406
